FAERS Safety Report 16763563 (Version 1)
Quarter: 2019Q3

REPORT INFORMATION
  Report Type: Spontaneous
  Country: US (occurrence: US)
  Receive Date: 20190902
  Receipt Date: 20190902
  Transmission Date: 20191005
  Serious: Yes (Hospitalization)
  Sender: FDA-Public Use
  Company Number: US-PFIZER INC-2019370456

PATIENT
  Age: 50 Year
  Sex: Male
  Weight: 103.26 kg

DRUGS (4)
  1. SODIUM BICARBONATE. [Suspect]
     Active Substance: SODIUM BICARBONATE
     Indication: LOCAL ANAESTHESIA
     Dosage: UNK (2-4 ML)
     Dates: start: 20190103
  2. LIDOCAINE. [Concomitant]
     Active Substance: LIDOCAINE
     Dosage: UNK
  3. LIDOCAINE. [Concomitant]
     Active Substance: LIDOCAINE
     Dosage: UNK
  4. LIDOCAINE AND EPINEPHRINE [Concomitant]
     Active Substance: EPINEPHRINE\LIDOCAINE HYDROCHLORIDE
     Dosage: UNK,(LIDOCAINE 1% WITH EPINEPHRINE)
     Dates: start: 20190103

REACTIONS (4)
  - Poor quality product administered [Recovered/Resolved]
  - Product contamination physical [Recovered/Resolved]
  - Emotional disorder [Recovered/Resolved]
  - Injection site pain [Recovered/Resolved]

NARRATIVE: CASE EVENT DATE: 20190130
